FAERS Safety Report 6623503-8 (Version None)
Quarter: 2010Q1

REPORT INFORMATION
  Report Type: 
  Country: None (occurrence: None)
  Receive Date: 20100310
  Receipt Date: 20100224
  Transmission Date: 20100710
  Serious: Yes (Hospitalization, Disabling)
  Sender: FDA-Public Use
  Company Number: FR-CELGENEUS-056-C5013-09080070

PATIENT
  Sex: Male
  Weight: 54 kg

DRUGS (14)
  1. CC-5013 [Suspect]
     Indication: MULTIPLE MYELOMA
     Route: 048
     Dates: start: 20090331, end: 20090622
  2. DEXAMETHASONE [Suspect]
     Indication: MULTIPLE MYELOMA
     Dates: start: 20090331, end: 20090622
  3. ZOMETA [Concomitant]
     Indication: BONE PAIN
     Route: 051
     Dates: start: 20090311, end: 20090518
  4. ZOMETA [Concomitant]
     Indication: OSTEOPOROSIS
  5. PLAVIX [Concomitant]
     Indication: THROMBOSIS PROPHYLAXIS
     Route: 048
     Dates: start: 20000101
  6. ZESTRIL [Concomitant]
     Route: 048
     Dates: start: 20041201
  7. LASILIX [Concomitant]
     Route: 048
     Dates: start: 20041101
  8. CARDENSIEL [Concomitant]
     Route: 048
     Dates: start: 20000101
  9. LEVOTHYROX [Concomitant]
     Indication: HYPOTHYROIDISM
     Route: 048
     Dates: start: 20000101
  10. ALLOPURINOL [Concomitant]
     Indication: PROPHYLAXIS
     Route: 048
     Dates: start: 20040101
  11. ZYMAD [Concomitant]
     Indication: PROPHYLAXIS
     Route: 048
     Dates: start: 20070101
  12. IXEL [Concomitant]
     Indication: DEPRESSION
     Route: 048
     Dates: start: 20090323, end: 20090518
  13. DIANTALVIC [Concomitant]
     Route: 048
     Dates: start: 20090401, end: 20090501
  14. MOPRAL [Concomitant]
     Indication: DRUG USE FOR UNKNOWN INDICATION
     Route: 065

REACTIONS (1)
  - CEREBROVASCULAR ACCIDENT [None]
